FAERS Safety Report 7506714-9 (Version None)
Quarter: 2011Q2

REPORT INFORMATION
  Report Type: 
  Country: None (occurrence: None)
  Receive Date: 20110526
  Receipt Date: 20110523
  Transmission Date: 20111010
  Serious: Yes (Other)
  Sender: FDA-Public Use
  Company Number: US-MYLANLABS-2011S1004867

PATIENT
  Age: 79 Year
  Sex: Female
  Weight: 58.97 kg

DRUGS (5)
  1. SYNTHROID [Concomitant]
  2. PROVIGIL [Concomitant]
  3. SINGULAIR [Concomitant]
  4. DEXILANT [Concomitant]
  5. PERFOROMIST [Suspect]
     Indication: CHRONIC OBSTRUCTIVE PULMONARY DISEASE
     Route: 055
     Dates: start: 20110210, end: 20110210

REACTIONS (1)
  - ANAPHYLACTIC REACTION [None]
